FAERS Safety Report 8200748-7 (Version None)
Quarter: 2012Q1

REPORT INFORMATION
  Report Type: 
  Country: None (occurrence: None)
  Receive Date: 20120301
  Receipt Date: 20120223
  Transmission Date: 20120608
  Serious: Yes (Hospitalization)
  Sender: FDA-Public Use
  Company Number: 2012031334

PATIENT
  Age: 26 Year
  Sex: Male

DRUGS (2)
  1. KIOVIG [Suspect]
     Indication: AUTONOMIC NEUROPATHY
     Dosage: 100MG/ML
  2. PRIVIGEN [Suspect]
     Indication: AUTONOMIC NEUROPATHY
     Dosage: 100MG/ML  INTRAVENOUS (NOT OTHERWISE SPECIFIED)
     Route: 042
     Dates: start: 20110912, end: 20110916

REACTIONS (5)
  - BLOOD ALBUMIN DECREASED [None]
  - BLOOD UREA INCREASED [None]
  - NEPHROTIC SYNDROME [None]
  - OFF LABEL USE [None]
  - BLOOD CREATININE INCREASED [None]
